FAERS Safety Report 19477815 (Version 1)
Quarter: 2021Q2

REPORT INFORMATION
  Report Type: Spontaneous
  Country: CN (occurrence: CN)
  Receive Date: 20210630
  Receipt Date: 20210630
  Transmission Date: 20210717
  Serious: Yes (Hospitalization, Other)
  Sender: FDA-Public Use
  Company Number: CN-SA-2021SA205206

PATIENT
  Age: 92 Year
  Sex: Male
  Weight: 60 kg

DRUGS (5)
  1. PLAVIX [Suspect]
     Active Substance: CLOPIDOGREL BISULFATE
     Indication: CARDIOMEGALY
  2. RIVAROXABAN [Concomitant]
     Active Substance: RIVAROXABAN
     Indication: CARDIOMEGALY
     Dosage: 10 MG, QD
     Route: 048
     Dates: start: 20200201, end: 20200914
  3. DICLOFENAC SODIUM. [Concomitant]
     Active Substance: DICLOFENAC SODIUM
     Indication: ANALGESIC THERAPY
     Dosage: 1 DF, BID
     Route: 048
     Dates: start: 20200903, end: 20200910
  4. RIVAROXABAN [Concomitant]
     Active Substance: RIVAROXABAN
     Indication: ARTERIOSCLEROSIS CORONARY ARTERY
     Dosage: 5 MG, QD
     Route: 048
  5. PLAVIX [Suspect]
     Active Substance: CLOPIDOGREL BISULFATE
     Indication: ARTERIOSCLEROSIS CORONARY ARTERY
     Dosage: 75 MG, QD
     Route: 048
     Dates: start: 20200201, end: 20200914

REACTIONS (2)
  - Cardiac failure [Recovering/Resolving]
  - Upper gastrointestinal haemorrhage [Recovering/Resolving]

NARRATIVE: CASE EVENT DATE: 20200915
